FAERS Safety Report 24864892 (Version 2)
Quarter: 2025Q3

REPORT INFORMATION
  Report Type: Spontaneous
  Country: US (occurrence: US)
  Receive Date: 20250121
  Receipt Date: 20250813
  Transmission Date: 20251021
  Serious: No
  Sender: UNITED THERAPEUTICS
  Company Number: US-UNITED THERAPEUTICS-UNT-2024-041214

PATIENT
  Age: 71 Year
  Sex: Male
  Weight: 108.84 kg

DRUGS (6)
  1. TYVASO DPI [Suspect]
     Active Substance: TREPROSTINIL
     Indication: Pulmonary arterial hypertension
     Dosage: 16 ?G, QID
     Dates: start: 202412, end: 202412
  2. TYVASO DPI [Suspect]
     Active Substance: TREPROSTINIL
  3. TYVASO DPI [Suspect]
     Active Substance: TREPROSTINIL
     Indication: Pulmonary arterial hypertension
  4. OXYGEN [Concomitant]
     Active Substance: OXYGEN
     Indication: Product used for unknown indication
  5. BOSULIF [Concomitant]
     Active Substance: BOSUTINIB MONOHYDRATE
     Indication: Product used for unknown indication
  6. TORSEMIDE [Concomitant]
     Active Substance: TORSEMIDE
     Indication: Product used for unknown indication

REACTIONS (12)
  - Condition aggravated [Unknown]
  - Dyspnoea exertional [Unknown]
  - Gait disturbance [Unknown]
  - Dyspnoea [Not Recovered/Not Resolved]
  - Ear infection [Unknown]
  - Swelling face [Unknown]
  - Ocular hyperaemia [Unknown]
  - Headache [Not Recovered/Not Resolved]
  - Sluggishness [Unknown]
  - Therapy non-responder [Unknown]
  - Fatigue [Unknown]
  - Tooth disorder [Unknown]

NARRATIVE: CASE EVENT DATE: 20241201
